FAERS Safety Report 5092210-8 (Version None)
Quarter: 2006Q3

REPORT INFORMATION
  Report Type: 
  Country: None (occurrence: None)
  Receive Date: 20060824
  Receipt Date: 20060807
  Transmission Date: 20061208
  Serious: Yes (Death, Other)
  Sender: FDA-Public Use
  Company Number: USA-2006-0024629

PATIENT
  Age: 20 Year
  Sex: Female
  Weight: 162.4 kg

DRUGS (2)
  1. OXYCODONE HCL [Suspect]
     Indication: DRUG USE FOR UNKNOWN INDICATION
  2. PROZAC [Concomitant]

REACTIONS (8)
  - CHOLELITHIASIS [None]
  - COMA [None]
  - DEPRESSION [None]
  - DRUG ABUSER [None]
  - DRUG TOXICITY [None]
  - HYPERPLASTIC CHOLECYSTOPATHY [None]
  - OBESITY [None]
  - OVERDOSE [None]
